FAERS Safety Report 8293747-0 (Version None)
Quarter: 2012Q2

REPORT INFORMATION
  Report Type: 
  Country: None (occurrence: None)
  Receive Date: 20120413
  Receipt Date: 20120401
  Transmission Date: 20120825
  Serious: Yes (Hospitalization)
  Sender: FDA-Public Use
  Company Number: DSA_55823_2012

PATIENT
  Age: 77 Year
  Sex: Male

DRUGS (11)
  1. FELODIPINE [Concomitant]
  2. GLIPIZIDE [Concomitant]
  3. DERMOVAT /00337102/ [Concomitant]
  4. FLAGYL [Suspect]
     Indication: CLOSTRIDIAL INFECTION
     Dosage: (DF ORAL)
     Route: 048
     Dates: start: 20120119, end: 20120129
  5. FLAGYL [Suspect]
     Indication: CLOSTRIDIAL INFECTION
     Dosage: (DF ORAL)
     Route: 048
     Dates: start: 20120103
  6. FLAGYL [Suspect]
     Indication: CLOSTRIDIAL INFECTION
     Dosage: (DF ORAL)
     Route: 048
     Dates: start: 20120113
  7. FLAGYL [Suspect]
     Indication: CLOSTRIDIAL INFECTION
     Dosage: (DF ORAL)
     Route: 048
     Dates: start: 20111130
  8. DIMOR [Concomitant]
  9. ANTIBIOTICS [Concomitant]
  10. ENALAPRIL MALEATE [Concomitant]
  11. INOLAXOL /00561901/ [Concomitant]

REACTIONS (3)
  - VASCULITIS [None]
  - DIARRHOEA [None]
  - WOUND [None]
